FAERS Safety Report 10086898 (Version 2)
Quarter: 2014Q2

REPORT INFORMATION
  Report Type: Report from Study
  Country: US (occurrence: US)
  Receive Date: 20140418
  Receipt Date: 20140418
  Transmission Date: 20141212
  Serious: Yes (Hospitalization)
  Sender: FDA-Public Use
  Company Number: US-JNJFOC-20140113163

PATIENT
  Age: 60 Year
  Sex: Male

DRUGS (8)
  1. REMICADE [Suspect]
     Indication: PSORIATIC ARTHROPATHY
     Dosage: FOR 2 MONTHS
     Route: 042
     Dates: start: 201301
  2. REMICADE [Suspect]
     Indication: PSORIATIC ARTHROPATHY
     Route: 042
     Dates: start: 201311
  3. REMICADE [Suspect]
     Indication: PSORIATIC ARTHROPATHY
     Dosage: FOR 3 MONTHS, THEN EVERY OTHER MONTH FOR 2 MONTHS, AFTER THE 7TH MONTH.
     Route: 042
  4. REMICADE [Suspect]
     Indication: PSORIATIC ARTHROPATHY
     Route: 042
     Dates: start: 201310
  5. REMICADE [Suspect]
     Indication: PSORIASIS
     Route: 042
     Dates: start: 201310
  6. REMICADE [Suspect]
     Indication: PSORIASIS
     Dosage: FOR 3 MONTHS, THEN EVERY OTHER MONTH FOR 2 MONTHS, AFTER THE 7TH MONTH.
     Route: 042
  7. REMICADE [Suspect]
     Indication: PSORIASIS
     Route: 042
     Dates: start: 201311
  8. REMICADE [Suspect]
     Indication: PSORIASIS
     Dosage: FOR 2 MONTHS
     Route: 042
     Dates: start: 201301

REACTIONS (5)
  - Hyperhidrosis [Recovering/Resolving]
  - Infusion related reaction [Recovering/Resolving]
  - Skin lesion [Recovering/Resolving]
  - Dyspnoea [Recovering/Resolving]
  - Psoriasis [Recovering/Resolving]
